FAERS Safety Report 16109753 (Version 2)
Quarter: 2019Q2

REPORT INFORMATION
  Report Type: Report from Study
  Country: PT (occurrence: PT)
  Receive Date: 20190325
  Receipt Date: 20190405
  Transmission Date: 20190711
  Serious: No
  Sender: FDA-Public Use
  Company Number: PT-CELLTRION INC.-2019PT019586

PATIENT

DRUGS (11)
  1. REMSIMA [Suspect]
     Active Substance: INFLIXIMAB
     Dosage: 300 MG (WT: 60)
     Route: 042
     Dates: start: 20170707, end: 20170707
  2. REMSIMA [Suspect]
     Active Substance: INFLIXIMAB
     Dosage: 560 MG (WT: 56)
     Route: 042
     Dates: start: 20180613, end: 20180613
  3. REMSIMA [Suspect]
     Active Substance: INFLIXIMAB
     Indication: CROHN^S DISEASE
     Dosage: 310 MG (WT: 62)
     Route: 042
     Dates: start: 20170512, end: 20170512
  4. REMSIMA [Suspect]
     Active Substance: INFLIXIMAB
     Dosage: 300 MG (WT: 60)
     Route: 042
     Dates: start: 20180216, end: 20180216
  5. REMSIMA [Suspect]
     Active Substance: INFLIXIMAB
     Dosage: 300 MG (WT: 60)
     Route: 042
     Dates: start: 20181008, end: 20181008
  6. REMSIMA [Suspect]
     Active Substance: INFLIXIMAB
     Dosage: 300 MG (WT: 60)
     Route: 042
     Dates: start: 20171027, end: 20171027
  7. REMSIMA [Suspect]
     Active Substance: INFLIXIMAB
     Dosage: 300 MG (WT: 60)
     Route: 042
     Dates: start: 20171221, end: 20171221
  8. REMSIMA [Suspect]
     Active Substance: INFLIXIMAB
     Dosage: 295 MG (WT: 59)
     Route: 042
     Dates: start: 20180813, end: 20180813
  9. REMSIMA [Suspect]
     Active Substance: INFLIXIMAB
     Dosage: 300 MG (WT: 60)
     Route: 042
     Dates: start: 20170901, end: 20170901
  10. REMSIMA [Suspect]
     Active Substance: INFLIXIMAB
     Dosage: 300 MG (WT: 60)
     Route: 042
     Dates: start: 20180413, end: 20180413
  11. AZATHIOPRINE. [Concomitant]
     Active Substance: AZATHIOPRINE
     Indication: INFLAMMATORY BOWEL DISEASE
     Dosage: 150 MG, QD
     Route: 048
     Dates: start: 201607

REACTIONS (1)
  - Anal fistula [Recovered/Resolved]

NARRATIVE: CASE EVENT DATE: 20181114
